FAERS Safety Report 21393320 (Version 2)
Quarter: 2022Q4

REPORT INFORMATION
  Report Type: Report from Study
  Country: US (occurrence: US)
  Receive Date: 20220929
  Receipt Date: 20221117
  Transmission Date: 20230113
  Serious: Yes (Hospitalization)
  Sender: FDA-Public Use
  Company Number: US-Vifor (International) Inc.-VIT-2022-06673

PATIENT
  Sex: Male

DRUGS (14)
  1. VELTASSA [Suspect]
     Active Substance: PATIROMER
     Indication: Hyperkalaemia
     Route: 048
  2. METOPROLOL [Concomitant]
     Active Substance: METOPROLOL
  3. LEVOTHYROXINE [Concomitant]
     Active Substance: LEVOTHYROXINE
  4. ATORVASTATIN [Concomitant]
     Active Substance: ATORVASTATIN
  5. SENNA [Concomitant]
     Active Substance: SENNA LEAF\SENNOSIDES\SENNOSIDES A AND B
     Dosage: LAXATIVE
  6. NIFEDIPINE [Concomitant]
     Active Substance: NIFEDIPINE
  7. LEVETIRACETAM [Concomitant]
     Active Substance: LEVETIRACETAM
  8. CLONIDINE [Concomitant]
     Active Substance: CLONIDINE
  9. HYDRALAZINE [Concomitant]
     Active Substance: HYDRALAZINE HYDROCHLORIDE
  10. SERTRALINE [Concomitant]
     Active Substance: SERTRALINE HYDROCHLORIDE
  11. SUCRALFATE [Concomitant]
     Active Substance: SUCRALFATE
  12. TORSEMIDE [Concomitant]
     Active Substance: TORSEMIDE
  13. HUMALOG [Concomitant]
     Active Substance: INSULIN LISPRO
  14. LANTUS [Concomitant]
     Active Substance: INSULIN GLARGINE

REACTIONS (1)
  - Liver disorder [Unknown]
